FAERS Safety Report 24976661 (Version 1)
Quarter: 2025Q1

REPORT INFORMATION
  Report Type: Report from Study
  Country: US (occurrence: US)
  Receive Date: 20250217
  Receipt Date: 20250217
  Transmission Date: 20250408
  Serious: Yes (Other)
  Sender: MYLAN
  Company Number: US-MYLANLABS-2025M1013208

PATIENT
  Age: 45 Year
  Sex: Female

DRUGS (1)
  1. MYCOPHENOLATE MOFETIL [Suspect]
     Active Substance: MYCOPHENOLATE MOFETIL
     Indication: Erdheim-Chester disease
     Dosage: 500 MILLIGRAM, QID
     Route: 065

REACTIONS (3)
  - Rebound effect [Recovering/Resolving]
  - Exophthalmos [Recovering/Resolving]
  - Off label use [Unknown]
